FAERS Safety Report 12961657 (Version 1)
Quarter: 2016Q4

REPORT INFORMATION
  Report Type: Spontaneous
  Country: US (occurrence: US)
  Receive Date: 20161121
  Receipt Date: 20161121
  Transmission Date: 20170207
  Serious: Yes (Other)
  Sender: FDA-Public Use
  Company Number: US-EISAI MEDICAL RESEARCH-EC-2016-022500

PATIENT
  Sex: Male

DRUGS (5)
  1. FYCOMPA [Suspect]
     Active Substance: PERAMPANEL
     Route: 048
     Dates: start: 2016, end: 2016
  2. FYCOMPA [Suspect]
     Active Substance: PERAMPANEL
     Route: 048
     Dates: start: 2016, end: 2016
  3. FYCOMPA [Suspect]
     Active Substance: PERAMPANEL
     Indication: PRODUCT USED FOR UNKNOWN INDICATION
     Dosage: UNKNOWN
     Route: 048
     Dates: start: 2016, end: 2016
  4. FYCOMPA [Suspect]
     Active Substance: PERAMPANEL
     Dosage: TITRATED UP (DOSING UNSPECIFIED)
     Route: 048
     Dates: start: 2016, end: 2016
  5. FYCOMPA [Suspect]
     Active Substance: PERAMPANEL
     Dosage: TITRATED DOWN (DOSING UNSPECIFIED) AND THEN DISCONTINUED.
     Route: 048
     Dates: start: 2016, end: 2016

REACTIONS (1)
  - Homicidal ideation [Unknown]
